FAERS Safety Report 12579832 (Version 2)
Quarter: 2016Q3

REPORT INFORMATION
  Report Type: Spontaneous
  Country: AR (occurrence: AR)
  Receive Date: 20160721
  Receipt Date: 20160905
  Transmission Date: 20161109
  Serious: Yes (Death, Hospitalization, Other)
  Sender: FDA-Public Use
  Company Number: AR-PFIZER INC-2016343870

PATIENT
  Age: 70 Year
  Sex: Female

DRUGS (2)
  1. IBRANCE [Suspect]
     Active Substance: PALBOCICLIB
     Indication: BREAST CANCER METASTATIC
     Dosage: 125 MG, DAILY
     Dates: start: 20160624
  2. LETROZOL [Concomitant]
     Active Substance: LETROZOLE
     Dosage: 2.5 MG, UNK

REACTIONS (8)
  - General physical health deterioration [Unknown]
  - Platelet count decreased [Unknown]
  - Intra-abdominal haematoma [Unknown]
  - White blood cell count decreased [Unknown]
  - Death [Fatal]
  - Lung infection [Unknown]
  - Petechiae [Unknown]
  - Urinary tract infection [Unknown]

NARRATIVE: CASE EVENT DATE: 20160709
